FAERS Safety Report 5642188-0 (Version None)
Quarter: 2008Q1

REPORT INFORMATION
  Report Type: 
  Country: None (occurrence: None)
  Receive Date: 20080225
  Receipt Date: 20080211
  Transmission Date: 20080703
  Serious: Yes (Hospitalization)
  Sender: FDA-Public Use
  Company Number: US022404

PATIENT
  Age: 39 Year
  Sex: Female
  Weight: 95.2554 kg

DRUGS (7)
  1. GABITRIL [Suspect]
     Indication: BRAIN NEOPLASM
     Dosage: 4MG QAM/8MG QPM ORAL
     Route: 048
     Dates: start: 20071216, end: 20080101
  2. GABITRIL [Suspect]
     Indication: BRAIN NEOPLASM
     Dosage: 4MG QAM//4MG QPM ORAL, 4 MG QD, ORAL
     Route: 048
     Dates: start: 20080102, end: 20080121
  3. GABITRIL [Suspect]
     Indication: BRAIN NEOPLASM
     Dosage: 4MG QAM//4MG QPM ORAL, 4 MG QD, ORAL
     Route: 048
     Dates: start: 20080122, end: 20080124
  4. ZONEGRAN [Concomitant]
  5. TRILEPTAL [Concomitant]
  6. ZOLOFT [Concomitant]
  7. GABITRIL [Suspect]
     Indication: BRAIN NEOPLASM
     Dosage: 4 MG QD ORAL
     Route: 048
     Dates: start: 20080122, end: 20080124

REACTIONS (6)
  - ACNE [None]
  - CONVULSION [None]
  - FEELING ABNORMAL [None]
  - PARAESTHESIA [None]
  - SCREAMING [None]
  - SWELLING FACE [None]
